FAERS Safety Report 16830041 (Version 1)
Quarter: 2019Q3

REPORT INFORMATION
  Report Type: Spontaneous
  Country: JP (occurrence: JP)
  Receive Date: 20190919
  Receipt Date: 20190919
  Transmission Date: 20191005
  Serious: Yes (Hospitalization, Other)
  Sender: FDA-Public Use
  Company Number: JP-009507513-1909JPN005611

PATIENT
  Age: 38 Year
  Sex: Male
  Weight: 81 kg

DRUGS (17)
  1. EQUA [Suspect]
     Active Substance: VILDAGLIPTIN
     Dosage: 50 MG, DAILY
     Route: 048
     Dates: start: 20110930, end: 20111102
  2. TAKEPRON [Concomitant]
     Active Substance: LANSOPRAZOLE
     Dosage: 15 MG, UNK
     Route: 048
     Dates: start: 20110529
  3. PLAVIX [Concomitant]
     Active Substance: CLOPIDOGREL BISULFATE
     Dosage: 75 MG, UNK
     Route: 048
     Dates: start: 20120223, end: 20120330
  4. AMARYL [Concomitant]
     Active Substance: GLIMEPIRIDE
     Dosage: 1 MG, UNK
     Route: 048
     Dates: start: 20071013, end: 20110506
  5. VICTOZA [Concomitant]
     Active Substance: LIRAGLUTIDE
     Dosage: 0.9 MG, UNK
     Route: 058
     Dates: start: 20120126
  6. EQUA [Suspect]
     Active Substance: VILDAGLIPTIN
     Indication: DIABETES MELLITUS
     Dosage: 50 MG, DAILY
     Route: 048
     Dates: start: 20101212, end: 20110924
  7. AVAPRO [Concomitant]
     Active Substance: IRBESARTAN
     Dosage: 100 MG, UNK
     Route: 048
     Dates: start: 20110512, end: 20120416
  8. PLETAAL [Concomitant]
     Active Substance: CILOSTAZOL
     Dosage: 100 MG, UNK
     Route: 048
     Dates: start: 20120322
  9. CARDENALIN [Concomitant]
     Active Substance: DOXAZOSIN MESYLATE
     Dosage: 4 MG, UNK
     Route: 048
     Dates: start: 20071208
  10. BAYASPIRIN [Concomitant]
     Active Substance: ASPIRIN
     Dosage: 100 MG, UNK
     Route: 048
     Dates: start: 20120223, end: 20120330
  11. JANUVIA [Suspect]
     Active Substance: SITAGLIPTIN PHOSPHATE
     Dosage: 25 MG, UNK
     Route: 048
     Dates: start: 20111111, end: 20111214
  12. EQUA [Suspect]
     Active Substance: VILDAGLIPTIN
     Dosage: 50 MG, DAILY
     Route: 048
     Dates: start: 20111214, end: 20120104
  13. RENIVACE [Concomitant]
     Active Substance: ENALAPRIL
     Dosage: 2.5 MG, UNK
     Route: 048
     Dates: start: 20111111, end: 20120416
  14. EPADEL [Concomitant]
     Active Substance: ICOSAPENT
     Dosage: 1800 MG, UNK
     Route: 048
     Dates: start: 20071110
  15. ADALAT CC [Concomitant]
     Active Substance: NIFEDIPINE
     Dosage: 20 MG, UNK
     Route: 048
     Dates: start: 20110512, end: 20120416
  16. ALEVIATIN [Concomitant]
     Active Substance: PHENYTOIN SODIUM
     Dosage: 2 G, UNK
     Route: 048
     Dates: start: 20120218
  17. LAC-B [Concomitant]
     Active Substance: BIFIDOBACTERIUM SPP.
     Dosage: 3 G, UNK
     Route: 048
     Dates: start: 20111104

REACTIONS (10)
  - Blood glucose increased [Unknown]
  - Anaemia [Unknown]
  - Haemoglobin decreased [Unknown]
  - Cerebral artery stenosis [Unknown]
  - Cerebral infarction [Recovering/Resolving]
  - Platelet count decreased [Unknown]
  - Blood alkaline phosphatase increased [Unknown]
  - Rhabdomyolysis [Recovering/Resolving]
  - Oedema [Unknown]
  - Myalgia [Unknown]

NARRATIVE: CASE EVENT DATE: 20110924
